FAERS Safety Report 18575476 (Version 9)
Quarter: 2021Q4

REPORT INFORMATION
  Report Type: Report from Study
  Country: US (occurrence: US)
  Receive Date: 20201203
  Receipt Date: 20211129
  Transmission Date: 20220304
  Serious: Yes (Hospitalization, Other)
  Sender: FDA-Public Use
  Company Number: US-PFIZER INC-2020468097

PATIENT
  Age: 62 Year
  Sex: Female
  Weight: 116.69 kg

DRUGS (42)
  1. INVESTIGATIONAL PRODUCT [Suspect]
     Active Substance: INVESTIGATIONAL PRODUCT
     Indication: Clostridium difficile immunisation
     Dosage: DOSE 3, 200 UG, SINGLE
     Route: 030
     Dates: start: 20200311, end: 20200311
  2. GABAPENTIN [Suspect]
     Active Substance: GABAPENTIN
     Indication: Neuropathy peripheral
     Dosage: 800 MG, PRN, TID
     Route: 048
     Dates: start: 20200114
  3. XANAX [Suspect]
     Active Substance: ALPRAZOLAM
     Indication: Anxiety
     Dosage: 0.5 MG, PRN
     Route: 048
     Dates: start: 2017
  4. ELIQUIS [Suspect]
     Active Substance: APIXABAN
     Indication: Cardiovascular event prophylaxis
     Dosage: UNK
     Route: 048
     Dates: start: 20200722, end: 20200811
  5. ELIQUIS [Suspect]
     Active Substance: APIXABAN
     Indication: Deep vein thrombosis
     Dosage: 5 MG, BID
     Route: 048
     Dates: start: 202008, end: 20200909
  6. VICODIN [Suspect]
     Active Substance: ACETAMINOPHEN\HYDROCODONE BITARTRATE
     Indication: Chest pain
     Dosage: MG, AS NEEDED
     Route: 048
     Dates: start: 20190225
  7. VICODIN [Suspect]
     Active Substance: ACETAMINOPHEN\HYDROCODONE BITARTRATE
     Dosage: 325/6 MG, PRN
     Route: 065
     Dates: start: 20200923
  8. NORCO [Suspect]
     Active Substance: ACETAMINOPHEN\HYDROCODONE BITARTRATE
     Indication: Back pain
     Dosage: 325/7.5 MG PRN
     Route: 048
     Dates: start: 20190225
  9. NORCO [Suspect]
     Active Substance: ACETAMINOPHEN\HYDROCODONE BITARTRATE
     Indication: Arthralgia
     Dosage: CHANGED TO 325/6 BY SEP 2
     Route: 048
     Dates: start: 20200902
  10. ALBUTEROL SULFATE [Concomitant]
     Active Substance: ALBUTEROL SULFATE
     Indication: Chronic obstructive pulmonary disease
     Dosage: 90 UG, AS NEEDED
     Route: 055
     Dates: start: 2014
  11. FIORICET [Concomitant]
     Active Substance: ACETAMINOPHEN\BUTALBITAL\CAFFEINE
     Indication: Migraine
     Dosage: 1 TAB (325/50/40), PRN
     Route: 048
     Dates: start: 2016
  12. ASPIRIN [Concomitant]
     Active Substance: ASPIRIN
     Indication: Cardiovascular event prophylaxis
     Dosage: 81 MG, QD
     Route: 048
     Dates: start: 2015
  13. ADVAIR HFA [Concomitant]
     Active Substance: FLUTICASONE PROPIONATE\SALMETEROL XINAFOATE
     Indication: Chronic obstructive pulmonary disease
     Dosage: UNK, BID
     Route: 055
     Dates: start: 2017
  14. IBUPROFEN [Concomitant]
     Active Substance: IBUPROFEN
     Indication: Pain
     Dosage: 800 MG, PRN
     Route: 048
     Dates: start: 2014
  15. IBUPROFEN [Concomitant]
     Active Substance: IBUPROFEN
     Indication: Pain
  16. LORATADINE [Concomitant]
     Active Substance: LORATADINE
     Indication: Hypersensitivity
     Dosage: 10 MG, QD
     Route: 048
     Dates: start: 2017
  17. LORATADINE [Concomitant]
     Active Substance: LORATADINE
     Indication: Hypersensitivity
  18. LASIX [Concomitant]
     Active Substance: FUROSEMIDE
     Indication: Oedema peripheral
     Dosage: 40 MG, QD
     Route: 048
     Dates: start: 2015
  19. LASIX [Concomitant]
     Active Substance: FUROSEMIDE
     Indication: Oedema peripheral
  20. DEPAKOTE [Concomitant]
     Active Substance: DIVALPROEX SODIUM
     Indication: Post-traumatic stress disorder
     Dosage: POSSIBLE D/C
     Route: 048
     Dates: start: 2018
  21. DEPAKOTE [Concomitant]
     Active Substance: DIVALPROEX SODIUM
     Indication: Post-traumatic stress disorder
  22. ATORVASTATIN [Concomitant]
     Active Substance: ATORVASTATIN
     Indication: Hyperlipidaemia
     Dosage: 40 MG, QD
     Route: 048
     Dates: start: 20200114
  23. METOPROLOL [Concomitant]
     Active Substance: METOPROLOL
     Indication: Hypertension
     Dosage: 25 MG, QD
     Route: 048
     Dates: start: 202006
  24. IRON [Concomitant]
     Active Substance: IRON
     Indication: Anaemia
     Dosage: MG, QD, SUPPLEMENT
     Route: 048
     Dates: start: 20200101
  25. MELATONIN [Concomitant]
     Active Substance: MELATONIN
     Indication: Post-traumatic stress disorder
     Dosage: 3 MG, QD
     Route: 048
     Dates: start: 2018
  26. MELATONIN [Concomitant]
     Active Substance: MELATONIN
     Indication: Post-traumatic stress disorder
  27. PROTONIX [Concomitant]
     Active Substance: PANTOPRAZOLE SODIUM
     Indication: Gastrooesophageal reflux disease
     Dosage: 40 MG, QD
     Route: 048
     Dates: start: 2016
  28. PAXIL [Concomitant]
     Active Substance: PAROXETINE HYDROCHLORIDE
     Indication: Anxiety
     Dosage: 60 MG (20MG+40 MG), QD
     Route: 048
     Dates: start: 2015
  29. POTASSIUM CHLORIDE [Concomitant]
     Active Substance: POTASSIUM CHLORIDE
     Indication: Hypokalaemia
     Dosage: 20 MEQ, PRN
     Route: 048
     Dates: start: 2015
  30. SEROQUEL [Concomitant]
     Active Substance: QUETIAPINE FUMARATE
     Indication: Anxiety
     Dosage: 450 MG, QD
     Route: 048
     Dates: start: 2016
  31. SEROQUEL [Concomitant]
     Active Substance: QUETIAPINE FUMARATE
     Dosage: 25 MG, PRN, TID
     Route: 048
     Dates: start: 2016
  32. REQUIP [Concomitant]
     Active Substance: ROPINIROLE HYDROCHLORIDE
     Indication: Restless legs syndrome
     Dosage: 0.25 MG, QD
     Route: 048
     Dates: start: 2016
  33. BENADRYL [Concomitant]
     Active Substance: DIPHENHYDRAMINE HYDROCHLORIDE
     Indication: Hypersensitivity
     Dosage: 25 MG, PRN
     Route: 048
     Dates: start: 2012
  34. ZANTAC [Concomitant]
     Active Substance: RANITIDINE HYDROCHLORIDE
     Indication: Gastrooesophageal reflux disease
     Dosage: UNK
     Dates: start: 2014, end: 201912
  35. ASPIRIN [Concomitant]
     Active Substance: ASPIRIN
     Indication: Cardiovascular event prophylaxis
     Dosage: 81 MILLIGRAM, QD
     Route: 048
     Dates: start: 2015
  36. FLUTICASONE [Concomitant]
     Active Substance: FLUTICASONE
     Indication: Chronic obstructive pulmonary disease
     Dosage: 55/14 MCG BID
     Dates: start: 2017
  37. PANTOPRAZOLE [Concomitant]
     Active Substance: PANTOPRAZOLE
     Indication: Gastrooesophageal reflux disease
     Dosage: 40 MILLIGRAM, QD
     Route: 048
  38. PAROXETINE [Concomitant]
     Active Substance: PAROXETINE
     Indication: Anxiety
     Dosage: 60 MILLIGRAM, QD
     Route: 048
     Dates: start: 2015
  39. QUETIAPINE [Concomitant]
     Active Substance: QUETIAPINE
     Indication: Anxiety
     Dosage: 450 MILLIGRAM, QD
     Route: 048
     Dates: start: 2016
  40. QUETIAPINE [Concomitant]
     Active Substance: QUETIAPINE
     Dosage: 25 MILLIGRAM, QD
     Route: 048
  41. RANITIDINE [Concomitant]
     Active Substance: RANITIDINE
     Indication: Gastrooesophageal reflux disease
     Dosage: 150 MILLIGRAM, PRN
     Route: 048
     Dates: start: 2014, end: 201912
  42. ROPINIROLE [Concomitant]
     Active Substance: ROPINIROLE
     Indication: Restless legs syndrome
     Dosage: 0.25 MILLIGRAM, QD

REACTIONS (1)
  - Metabolic encephalopathy [Recovered/Resolved]

NARRATIVE: CASE EVENT DATE: 20200908
